FAERS Safety Report 8256384-X (Version None)
Quarter: 2012Q2

REPORT INFORMATION
  Report Type: 
  Country: None (occurrence: None)
  Receive Date: 20120403
  Receipt Date: 20120321
  Transmission Date: 20120825
  Serious: Yes (Hospitalization, Other)
  Sender: FDA-Public Use
  Company Number: US-ELI_LILLY_AND_COMPANY-US201203006922

PATIENT
  Sex: Male

DRUGS (4)
  1. CYMBALTA [Suspect]
     Dosage: 90 MG, QD
  2. LISINOPRIL [Concomitant]
     Dosage: 10 MG, QD
  3. NEXIUM [Concomitant]
     Dosage: 40 MG, QD
  4. SIMVASTATIN [Concomitant]
     Dosage: 20 MG, QD

REACTIONS (2)
  - FALL [None]
  - JAW FRACTURE [None]
